FAERS Safety Report 14066762 (Version 1)
Quarter: 2017Q4

REPORT INFORMATION
  Report Type: Spontaneous
  Country: US (occurrence: US)
  Receive Date: 20171009
  Receipt Date: 20171009
  Transmission Date: 20180321
  Serious: No
  Sender: FDA-Public Use
  Company Number: US-BAYER-2017-188541

PATIENT
  Age: 53 Year
  Sex: Male
  Weight: 84 kg

DRUGS (3)
  1. CLARITIN [Suspect]
     Active Substance: LORATADINE
     Indication: HYPERSENSITIVITY
     Dosage: 1 DF, QD
     Route: 048
     Dates: start: 201701, end: 20170928
  2. CLARITIN [Suspect]
     Active Substance: LORATADINE
     Indication: NASOPHARYNGITIS
     Dosage: UNK
  3. ALEVE [Concomitant]
     Active Substance: NAPROXEN SODIUM
     Dosage: UNK
     Route: 065

REACTIONS (1)
  - Poor quality drug administered [Unknown]
